FAERS Safety Report 5578131-2 (Version None)
Quarter: 2007Q4

REPORT INFORMATION
  Report Type: 
  Country: None (occurrence: None)
  Receive Date: 20071130
  Receipt Date: 20070720
  Transmission Date: 20080405
  Serious: No
  Sender: FDA-Public Use
  Company Number: US200707005374

PATIENT
  Age: 53 Year
  Sex: Female

DRUGS (3)
  1. BYETTA [Suspect]
     Indication: TYPE 2 DIABETES MELLITUS
     Dosage: 10 UG, SUBCUTANEOUS
     Route: 058
     Dates: start: 20070718
  2. METFORMIN HCL [Concomitant]
  3. MICARDIS HCT [Concomitant]

REACTIONS (2)
  - DYSPHEMIA [None]
  - ENERGY INCREASED [None]
